FAERS Safety Report 21939034 (Version 1)
Quarter: 2023Q1

REPORT INFORMATION
  Report Type: Report from Study
  Country: CA (occurrence: CA)
  Receive Date: 20230201
  Receipt Date: 20230201
  Transmission Date: 20230417
  Serious: Yes (Other)
  Sender: FDA-Public Use
  Company Number: CA-HLS-202300119

PATIENT
  Age: 75 Year
  Sex: Male
  Weight: 66 kg

DRUGS (16)
  1. CLOZARIL [Suspect]
     Active Substance: CLOZAPINE
     Indication: Schizoaffective disorder
     Dosage: 100MG PO BID (AT SUPPER AND AT BEDTIME)
     Route: 048
     Dates: start: 20120214
  2. CLOZARIL [Suspect]
     Active Substance: CLOZAPINE
     Indication: Tardive dyskinesia
     Dosage: 100MG PO BID (AT SUPPER AND AT BEDTIME)
     Route: 048
     Dates: start: 20120214
  3. LITHIUM CARBONATE [Concomitant]
     Active Substance: LITHIUM CARBONATE
     Indication: Schizoaffective disorder
     Dosage: 900 MG PO ONCE A DAY (PRIOR TO OCT-18-2022 IT WAS AT 600MG DAILY)
     Route: 048
  4. ATROVENT [Concomitant]
     Active Substance: IPRATROPIUM BROMIDE
     Indication: Product used for unknown indication
     Dosage: 0.03% TWO REGULAR BID SPRAYS
     Route: 065
  5. PANTOPRAZOLE SODIUM [Concomitant]
     Active Substance: PANTOPRAZOLE SODIUM
     Indication: Product used for unknown indication
     Dosage: 40MG DAILY
     Route: 065
  6. VITAMIN B12 [Concomitant]
     Active Substance: CYANOCOBALAMIN
     Indication: Product used for unknown indication
     Dosage: 1,200 MCG PER DAY
     Route: 065
  7. VITAMIN D [Concomitant]
     Active Substance: VITAMIN D NOS
     Indication: Vitamin D decreased
     Dosage: 1,000 UNITS PO PER DAY
     Route: 048
  8. DOMPERIDONE [Concomitant]
     Active Substance: DOMPERIDONE
     Indication: Product used for unknown indication
     Dosage: TID BEFORE MEALS
     Route: 065
  9. HALDOL [Concomitant]
     Active Substance: HALOPERIDOL
     Indication: Aggression
     Dosage: 0.5MG ONE OR TWO TABLETS BID PRN
     Route: 065
  10. HALDOL [Concomitant]
     Active Substance: HALOPERIDOL
     Indication: Agitation
     Dosage: 0.5MG ONE OR TWO TABLETS BID PRN
     Route: 065
  11. COLACE [Concomitant]
     Active Substance: DOCUSATE SODIUM
     Indication: Constipation
     Dosage: 100MG PO ONCE DAILY
     Route: 048
  12. FORMOTEROL FUMARATE [Concomitant]
     Active Substance: FORMOTEROL FUMARATE
     Indication: Product used for unknown indication
     Route: 065
  13. LOXAPINE SUCCINATE [Concomitant]
     Active Substance: LOXAPINE SUCCINATE
     Indication: Product used for unknown indication
     Route: 065
  14. ALBUTEROL [Concomitant]
     Active Substance: ALBUTEROL
     Indication: Product used for unknown indication
     Route: 065
  15. ACLIDINIUM BROMIDE [Concomitant]
     Active Substance: ACLIDINIUM BROMIDE
     Indication: Product used for unknown indication
     Route: 065
  16. Senekot [Concomitant]
     Indication: Product used for unknown indication
     Route: 065

REACTIONS (31)
  - Aggression [Unknown]
  - Anaemia [Unknown]
  - Decreased appetite [Recovering/Resolving]
  - Abnormal behaviour [Recovering/Resolving]
  - Blood pressure increased [Unknown]
  - Underweight [Unknown]
  - Cognitive disorder [Unknown]
  - Constipation [Unknown]
  - COVID-19 [Unknown]
  - Blood creatinine decreased [Unknown]
  - Diarrhoea [Recovered/Resolved]
  - Aphasia [Not Recovered/Not Resolved]
  - Neutrophil count decreased [Not Recovered/Not Resolved]
  - Dysphagia [Unknown]
  - Gastritis [Unknown]
  - Gamma-glutamyltransferase decreased [Unknown]
  - Ideas of reference [Unknown]
  - Denture wearer [Unknown]
  - Dyskinesia [Unknown]
  - Mobility decreased [Unknown]
  - Off label use [Unknown]
  - Psychomotor hyperactivity [Unknown]
  - Lung neoplasm [Unknown]
  - Schizoaffective disorder bipolar type [Recovered/Resolved]
  - Pneumonia [Unknown]
  - Salivary hypersecretion [Unknown]
  - Tardive dyskinesia [Unknown]
  - Tobacco user [Not Recovered/Not Resolved]
  - Blood thyroid stimulating hormone increased [Unknown]
  - Vitamin D decreased [Unknown]
  - Asthenia [Unknown]

NARRATIVE: CASE EVENT DATE: 20130101
